FAERS Safety Report 7319834-9 (Version None)
Quarter: 2011Q1

REPORT INFORMATION
  Report Type: 
  Country: None (occurrence: None)
  Receive Date: 20110228
  Receipt Date: 20101027
  Transmission Date: 20110831
  Serious: No
  Sender: FDA-Public Use
  Company Number: A0887100A

PATIENT
  Age: 79 Year
  Sex: Male
  Weight: 82.3 kg

DRUGS (3)
  1. LAMICTAL [Suspect]
     Indication: BIPOLAR DISORDER
     Dosage: 150MG PER DAY
     Route: 048
     Dates: start: 20090224, end: 20100927
  2. SERZONE [Concomitant]
     Route: 048
     Dates: start: 20070228
  3. ANAFRANIL [Concomitant]
     Route: 048
     Dates: start: 20090122

REACTIONS (2)
  - LIP SWELLING [None]
  - RASH [None]
